FAERS Safety Report 5441816-2 (Version None)
Quarter: 2007Q3

REPORT INFORMATION
  Report Type: 
  Country: None (occurrence: None)
  Receive Date: 20070830
  Receipt Date: 20070830
  Transmission Date: 20080115
  Serious: Yes (Other)
  Sender: FDA-Public Use
  Company Number: None

PATIENT
  Age: 46 Year
  Sex: Female

DRUGS (1)
  1. METHOTREXATE [Suspect]
     Indication: RHEUMATOID ARTHRITIS
     Dosage: 2.5 MG DAILY PO
     Route: 048
     Dates: start: 20070703, end: 20070827

REACTIONS (2)
  - ALOPECIA [None]
  - TRICHORRHEXIS [None]
